FAERS Safety Report 16268130 (Version 1)
Quarter: 2019Q2

REPORT INFORMATION
  Report Type: Spontaneous
  Country: DK (occurrence: DK)
  Receive Date: 20190503
  Receipt Date: 20190503
  Transmission Date: 20190711
  Serious: Yes (Other)
  Sender: FDA-Public Use
  Company Number: DK-TEVA-2019-DK-1037792

PATIENT
  Sex: Female

DRUGS (2)
  1. LOSARTAN HCLTHIAZID TEVA [Suspect]
     Active Substance: HYDROCHLOROTHIAZIDE\LOSARTAN POTASSIUM
     Dosage: 50 MG/12,5MG
     Route: 048
     Dates: start: 20181204, end: 20190305
  2. LOSARTAN HCLTHIAZID TEVA [Suspect]
     Active Substance: HYDROCHLOROTHIAZIDE\LOSARTAN POTASSIUM
     Indication: BLOOD PRESSURE INCREASED
     Dosage: 50 MG/12,5MG
     Route: 048
     Dates: start: 201303, end: 2018

REACTIONS (4)
  - Ocular hyperaemia [Unknown]
  - Xanthopsia [Unknown]
  - Visual impairment [Unknown]
  - Cataract [Unknown]

NARRATIVE: CASE EVENT DATE: 201805
